FAERS Safety Report 10285855 (Version 2)
Quarter: 2014Q3

REPORT INFORMATION
  Report Type: Spontaneous
  Country: DE (occurrence: None)
  Receive Date: 20140703
  Receipt Date: 20140724
  Transmission Date: 20150326
  Serious: Yes (Hospitalization)
  Sender: FDA-Public Use
  Company Number: DE-LHC-2014059

PATIENT
  Age: 77 Year
  Sex: Male

DRUGS (1)
  1. CONOXIA [Suspect]
     Active Substance: OXYGEN
     Indication: CHRONIC OBSTRUCTIVE PULMONARY DISEASE
     Dosage: 3-4 LITER PER MINUTE FOR 24 HOURS PER DAY, INHALATION
     Route: 055

REACTIONS (5)
  - Skin graft [None]
  - Frostbite [None]
  - Injury [None]
  - Medical device complication [None]
  - Burns third degree [None]

NARRATIVE: CASE EVENT DATE: 20140620
